FAERS Safety Report 17558363 (Version 1)
Quarter: 2020Q1

REPORT INFORMATION
  Report Type: Report from Study
  Country: FR (occurrence: FR)
  Receive Date: 20200319
  Receipt Date: 20200319
  Transmission Date: 20200409
  Serious: Yes (Other)
  Sender: FDA-Public Use
  Company Number: FR-AUROBINDO-AUR-APL-2020-013520

PATIENT

DRUGS (1)
  1. TENOFOVIR + EMTRICITABINE FILM COATED TABLETS [Suspect]
     Active Substance: EMTRICITABINE\TENOFOVIR
     Indication: PROPHYLAXIS AGAINST HIV INFECTION
     Dosage: 300 MG/200 MG
     Route: 065
     Dates: start: 201202

REACTIONS (1)
  - Glomerular filtration rate decreased [Unknown]
